FAERS Safety Report 5211132-2 (Version None)
Quarter: 2006Q4

REPORT INFORMATION
  Report Type: 
  Country: None (occurrence: None)
  Receive Date: 20061130
  Receipt Date: 20060612
  Transmission Date: 20070319
  Serious: Yes (Other)
  Sender: FDA-Public Use
  Company Number: WAES 0403USA02209

PATIENT
  Age: 69 Year
  Sex: Female
  Weight: 43.0917 kg

DRUGS (3)
  1. FOSAMAX [Suspect]
     Dosage: 70 MG WKY PO
     Route: 048
  2. DILANTIN [Concomitant]
  3. LESCOL [Concomitant]

REACTIONS (1)
  - OSTEONECROSIS [None]
